FAERS Safety Report 7321271-8 (Version None)
Quarter: 2011Q1

REPORT INFORMATION
  Report Type: 
  Country: None (occurrence: None)
  Receive Date: 20110228
  Receipt Date: 20100323
  Transmission Date: 20110831
  Serious: No
  Sender: FDA-Public Use
  Company Number: US-PFIZER INC-2010037713

PATIENT

DRUGS (1)
  1. GEODON [Suspect]
     Dosage: 80 MG, UNK
     Route: 048

REACTIONS (2)
  - NAUSEA [None]
  - VOMITING [None]
